FAERS Safety Report 10945641 (Version 1)
Quarter: 2015Q1

REPORT INFORMATION
  Report Type: Spontaneous
  Country: US (occurrence: US)
  Receive Date: 20150323
  Receipt Date: 20150323
  Transmission Date: 20150721
  Serious: Yes (Death, Other)
  Sender: FDA-Public Use
  Company Number: US-PFIZER INC-2015098960

PATIENT
  Age: 83 Year
  Sex: Male
  Weight: 75 kg

DRUGS (3)
  1. LYRICA [Suspect]
     Active Substance: PREGABALIN
     Indication: PAIN IN EXTREMITY
     Dosage: UNK
  2. VITAMIN B12 [Concomitant]
     Active Substance: CYANOCOBALAMIN
  3. METFORMIN [Concomitant]
     Active Substance: METFORMIN HYDROCHLORIDE

REACTIONS (5)
  - Weight decreased [Unknown]
  - Overdose [Fatal]
  - Dyspnoea [Unknown]
  - Cardiac arrest [Fatal]
  - Renal disorder [Unknown]

NARRATIVE: CASE EVENT DATE: 20140601
